FAERS Safety Report 8927238 (Version 2)
Quarter: 2012Q4

REPORT INFORMATION
  Report Type: 
  Country: DE (occurrence: PH)
  Receive Date: 20121127
  Receipt Date: 20121204
  Transmission Date: 20130627
  Serious: Yes (Death, Other)
  Sender: FDA-Public Use
  Company Number: PH-FRI-1000040604

PATIENT
  Age: 67 Year

DRUGS (4)
  1. ROFLUMILAST [Suspect]
  2. SERETIDE [Concomitant]
  3. LANOXIN [Concomitant]
  4. ALDAZIDE [Concomitant]

REACTIONS (5)
  - Cardiac failure [Fatal]
  - Mental disorder [Recovered/Resolved]
  - Memory impairment [Recovered/Resolved]
  - Abnormal behaviour [Recovered/Resolved]
  - Enuresis [Recovered/Resolved]
